FAERS Safety Report 6609540-8 (Version None)
Quarter: 2010Q1

REPORT INFORMATION
  Report Type: 
  Country: None (occurrence: None)
  Receive Date: 20100302
  Receipt Date: 20100222
  Transmission Date: 20100710
  Serious: Yes (Other)
  Sender: FDA-Public Use
  Company Number: US-JNJFOC-20100210229

PATIENT
  Sex: Male
  Weight: 86.18 kg

DRUGS (7)
  1. FENTANYL CITRATE [Suspect]
     Indication: NECK PAIN
     Dosage: 2 100UG/HR PATCHES
     Route: 062
  2. FENTANYL CITRATE [Suspect]
     Route: 062
  3. FENTANYL CITRATE [Suspect]
     Indication: BACK PAIN
     Route: 062
  4. FENTANYL CITRATE [Suspect]
     Dosage: 2 100UG/HR PATCHES
     Route: 062
  5. FENTANYL CITRATE [Suspect]
     Dosage: 100UG/HR+100UG/HR=200UG/HR
     Route: 062
  6. FENTANYL CITRATE [Suspect]
     Dosage: 100UG/HR+100UG/HR=200UG/HR
     Route: 062
  7. ZOLOFT [Concomitant]
     Indication: NERVOUSNESS
     Route: 048

REACTIONS (2)
  - PAIN [None]
  - THROMBOSIS [None]
